FAERS Safety Report 8266926-6 (Version None)
Quarter: 2012Q2

REPORT INFORMATION
  Report Type: 
  Country: None (occurrence: None)
  Receive Date: 20120404
  Receipt Date: 20120404
  Transmission Date: 20120825
  Serious: Yes (Hospitalization)
  Sender: FDA-Public Use
  Company Number: None

PATIENT
  Age: 93 Year
  Sex: Female
  Weight: 46 kg

DRUGS (11)
  1. OMEPRAZOLE [Concomitant]
  2. AMIODARONE HCL [Concomitant]
  3. ASPIRIN [Suspect]
     Indication: CORONARY ARTERY DISEASE
     Dosage: 81MG DAILY PO CHRONIC
     Route: 048
  4. LIPITOR [Concomitant]
  5. ATENOLOL [Concomitant]
  6. FERROUS SULFATE TAB [Concomitant]
  7. COUMADIN [Suspect]
     Indication: ATRIAL FIBRILLATION
     Dosage: 2MG / 1.5MG  MF/TWTHSS PO RECENT
     Route: 048
  8. COUMADIN [Suspect]
     Indication: CORONARY ARTERY DISEASE
     Dosage: 2MG / 1.5MG  MF/TWTHSS PO RECENT
     Route: 048
  9. DEMADEX [Suspect]
     Dosage: 10MG Q DAILY
  10. ASCORBIC ACID [Concomitant]
  11. MULTI-VITAMINS [Concomitant]

REACTIONS (6)
  - RENAL FAILURE ACUTE [None]
  - UPPER GASTROINTESTINAL HAEMORRHAGE [None]
  - LARGE INTESTINAL ULCER [None]
  - HAEMORRHAGIC ANAEMIA [None]
  - INTERNATIONAL NORMALISED RATIO INCREASED [None]
  - COAGULOPATHY [None]
